FAERS Safety Report 11695054 (Version 1)
Quarter: 2015Q4

REPORT INFORMATION
  Report Type: Spontaneous
  Country: US (occurrence: US)
  Receive Date: 20151103
  Receipt Date: 20151103
  Transmission Date: 20160304
  Serious: Yes (Other)
  Sender: FDA-Public Use
  Company Number: US-JNJFOC-20151021837

PATIENT
  Sex: Male

DRUGS (5)
  1. TAMIFLU [Suspect]
     Active Substance: OSELTAMIVIR PHOSPHATE
     Indication: INFLUENZA
     Route: 065
  2. STOOL SOFTENER [Concomitant]
     Active Substance: DOCUSATE CALCIUM
     Route: 065
  3. ERYTHROMYCIN. [Concomitant]
     Active Substance: ERYTHROMYCIN
     Route: 065
  4. SOLIFENACIN [Suspect]
     Active Substance: SOLIFENACIN
     Indication: URINARY INCONTINENCE
     Route: 048
     Dates: start: 2013
  5. LEVAQUIN [Suspect]
     Active Substance: LEVOFLOXACIN
     Indication: PNEUMONIA
     Route: 065

REACTIONS (3)
  - Adverse drug reaction [Unknown]
  - Rash [Recovered/Resolved]
  - Acne [Unknown]
